FAERS Safety Report 8208066-8 (Version None)
Quarter: 2012Q1

REPORT INFORMATION
  Report Type: 
  Country: None (occurrence: None)
  Receive Date: 20120314
  Receipt Date: 20120305
  Transmission Date: 20120608
  Serious: Yes (Hospitalization, Other)
  Sender: FDA-Public Use
  Company Number: PHHY2012FR020083

PATIENT
  Sex: Female

DRUGS (4)
  1. LOSARTAN POTASSIUM AND HYDROCHLOROTHIAZIDE [Concomitant]
     Dosage: 12.5 MG DAILY
  2. PRAVASTATIN [Concomitant]
     Dosage: 20 MG, DAILY
     Route: 048
  3. TENORMIN [Concomitant]
     Dosage: 100 MG, DAILY
     Route: 048
  4. FEMARA [Suspect]
     Indication: BREAST CANCER
     Dosage: 2.5 MG, DAILY
     Dates: end: 20111201

REACTIONS (9)
  - OCULOCEPHALOGYRIC REFLEX ABSENT [None]
  - HEMIANOPIA HOMONYMOUS [None]
  - CEREBROVASCULAR ACCIDENT [None]
  - HEMIPARESIS [None]
  - HYPOAESTHESIA [None]
  - ISCHAEMIC STROKE [None]
  - HEMIPLEGIA [None]
  - HEMISENSORY NEGLECT [None]
  - DILATATION ATRIAL [None]
